FAERS Safety Report 17140696 (Version 1)
Quarter: 2019Q4

REPORT INFORMATION
  Report Type: Spontaneous
  Country: US (occurrence: US)
  Receive Date: 20191211
  Receipt Date: 20191211
  Transmission Date: 20200122
  Serious: Yes (Other)
  Sender: FDA-Public Use
  Company Number: US-SUNOVION-2019SUN005327

PATIENT
  Age: 12 Year
  Sex: Female

DRUGS (2)
  1. APTIOM [Suspect]
     Active Substance: ESLICARBAZEPINE ACETATE
     Dosage: 200 MG, QD
     Route: 048
     Dates: end: 20191203
  2. APTIOM [Suspect]
     Active Substance: ESLICARBAZEPINE ACETATE
     Dosage: 100 MG (HALF 200MG TAB) QD
     Route: 048
     Dates: start: 20191203

REACTIONS (2)
  - Aggression [Not Recovered/Not Resolved]
  - Intentional underdose [Unknown]

NARRATIVE: CASE EVENT DATE: 20191203
